FAERS Safety Report 7610720-3 (Version None)
Quarter: 2011Q3

REPORT INFORMATION
  Report Type: 
  Country: None (occurrence: None)
  Receive Date: 20110715
  Receipt Date: 20110712
  Transmission Date: 20111222
  Serious: Yes (Other)
  Sender: FDA-Public Use
  Company Number: SI-PFIZER INC-2011156827

PATIENT
  Age: 79 Year
  Sex: Male

DRUGS (9)
  1. NEBIVOLOL HCL [Concomitant]
     Route: 048
  2. WARFARIN [Concomitant]
     Route: 048
  3. PIPERACILLIN AND TAZOBACTAM [Suspect]
     Indication: SEPSIS
     Dosage: 4.5 MG, 3X/DAY
     Route: 042
     Dates: start: 20110627, end: 20110627
  4. NITRO-DUR [Concomitant]
     Dosage: 0.6MG/H DURING THE DAY
     Route: 003
  5. OXYCONTIN [Concomitant]
     Route: 048
  6. PARACETAMOL [Concomitant]
     Dates: start: 20110601
  7. PIPERACILLIN AND TAZOBACTAM [Suspect]
     Dosage: 2.5 MG, 3X/DAY
     Dates: start: 20110628, end: 20110628
  8. MONOPRIL [Concomitant]
     Route: 048
  9. PREDUCTAL [Concomitant]
     Route: 048

REACTIONS (3)
  - THROMBOCYTOPENIA [None]
  - HAEMOPTYSIS [None]
  - SKIN HAEMORRHAGE [None]
